FAERS Safety Report 8517371-7 (Version None)
Quarter: 2012Q3

REPORT INFORMATION
  Report Type: 
  Country: None (occurrence: None)
  Receive Date: 20120718
  Receipt Date: 20120710
  Transmission Date: 20120928
  Serious: Yes (Other)
  Sender: FDA-Public Use
  Company Number: US-US-EMD SERONO, INC.-7127085

PATIENT
  Sex: Male

DRUGS (3)
  1. EGRIFTA [Suspect]
     Indication: PRODUCT USED FOR UNKNOWN INDICATION
     Dates: start: 20100101
  2. LIPITOR [Concomitant]
     Indication: BLOOD CHOLESTEROL
  3. EGRIFTA [Suspect]
     Dates: start: 20120401

REACTIONS (6)
  - ACTIVITIES OF DAILY LIVING IMPAIRED [None]
  - CARDIAC PACEMAKER INSERTION [None]
  - EMBOLISM [None]
  - WEIGHT DECREASED [None]
  - INSULIN-LIKE GROWTH FACTOR INCREASED [None]
  - ASTHENIA [None]
